FAERS Safety Report 23014463 (Version 1)
Quarter: 2023Q4

REPORT INFORMATION
  Report Type: Spontaneous
  Country: ES (occurrence: ES)
  Receive Date: 20231002
  Receipt Date: 20231002
  Transmission Date: 20240110
  Serious: Yes (Life-Threatening, Other)
  Sender: FDA-Public Use
  Company Number: None

PATIENT
  Age: 79 Year
  Sex: Male

DRUGS (6)
  1. NINTEDANIB [Suspect]
     Active Substance: NINTEDANIB
     Indication: Interstitial lung disease
     Route: 048
     Dates: start: 20230817, end: 20230826
  2. ZOREQUIN 30 MG/G GEL 1 tubo de 90 g [Concomitant]
     Indication: Product used for unknown indication
  3. ZOMARIST 50 mg/850 mg COMPRIMIDOS RECUBIERTOS CON PELICULA, 60 comprim [Concomitant]
     Indication: Product used for unknown indication
  4. THERVAN 10 MG COMPRIMIDOS RECUBIERTOS CON PELICULA EFG 28 comprimidos [Concomitant]
     Indication: Product used for unknown indication
  5. BALZAK PLUS 20 mg/5 mg/12,5 mg COMPRIMIDOS RECUBIERTOS CON PELICULA , [Concomitant]
     Indication: Product used for unknown indication
  6. PANTOPRAZOLE [Concomitant]
     Active Substance: PANTOPRAZOLE
     Indication: Product used for unknown indication

REACTIONS (1)
  - Abdominal pain upper [Unknown]

NARRATIVE: CASE EVENT DATE: 20230823
